FAERS Safety Report 7833059-X (Version None)
Quarter: 2011Q4

REPORT INFORMATION
  Report Type: 
  Country: None (occurrence: None)
  Receive Date: 20111024
  Receipt Date: 20111019
  Transmission Date: 20120403
  Serious: Yes (Death, Other)
  Sender: FDA-Public Use
  Company Number: JP-BAYER-2011-024711

PATIENT
  Age: 79 Year
  Sex: Male
  Weight: 57 kg

DRUGS (6)
  1. URSO 250 [Concomitant]
     Dosage: DAILY DOSE 600 MG
     Route: 048
     Dates: start: 20100726
  2. MONILAC [Concomitant]
     Dosage: DAILY DOSE 20 ML
     Route: 048
     Dates: start: 20100809
  3. AMINOLEBAN EN [Concomitant]
     Indication: HEPATIC FAILURE
     Dosage: DAILY DOSE 2 DF
     Route: 048
     Dates: start: 20100217
  4. SORAFENIB (RAF KINASE INHIBITOR) [Suspect]
     Indication: HEPATIC NEOPLASM MALIGNANT
     Dosage: 400 MG, QD
     Route: 048
     Dates: start: 20101220, end: 20110123
  5. MONILAC [Concomitant]
  6. METFORMIN HCL [Concomitant]
     Dosage: DAILY DOSE 250 MG
     Route: 048

REACTIONS (2)
  - HEPATIC NEOPLASM MALIGNANT [None]
  - HEPATIC ENCEPHALOPATHY [None]
